FAERS Safety Report 19835424 (Version 1)
Quarter: 2021Q3

REPORT INFORMATION
  Report Type: Spontaneous
  Country: DE (occurrence: DE)
  Receive Date: 20210915
  Receipt Date: 20210915
  Transmission Date: 20211014
  Serious: Yes (Hospitalization)
  Sender: FDA-Public Use
  Company Number: DE-ACCORD-238394

PATIENT
  Age: 43 Year
  Sex: Male

DRUGS (3)
  1. VIGANTOL [Concomitant]
     Dosage: 1000 IU, 2?0?0?0, TABLETS
     Route: 048
  2. ERGOCALCIFEROL. [Concomitant]
     Active Substance: ERGOCALCIFEROL
     Dosage: 1000 IU, 2?0?0?0, TABLETS
     Route: 048
  3. FINGOLIMOD/FINGOLIMOD HYDROCHLORIDE [Suspect]
     Active Substance: FINGOLIMOD HYDROCHLORIDE
     Indication: PRODUCT USED FOR UNKNOWN INDICATION
     Dosage: 0.5 MG, 1?0?0?0, TABLETS
     Route: 048

REACTIONS (8)
  - Pyrexia [Unknown]
  - Polyuria [Unknown]
  - Pain [Unknown]
  - Fatigue [Unknown]
  - Uhthoff^s phenomenon [Unknown]
  - Dysuria [Unknown]
  - Urinary tract infection [Unknown]
  - Coordination abnormal [Unknown]
